FAERS Safety Report 17900519 (Version 1)
Quarter: 2020Q2

REPORT INFORMATION
  Report Type: Spontaneous
  Country: US (occurrence: US)
  Receive Date: 20200616
  Receipt Date: 20200616
  Transmission Date: 20200714
  Serious: Yes (Death, Hospitalization, Other)
  Sender: FDA-Public Use
  Company Number: US-HIKMA PHARMACEUTICALS USA INC.-US-H14001-20-02780

PATIENT
  Age: 56 Year
  Sex: Female
  Weight: 33 kg

DRUGS (1)
  1. HEPARIN [Suspect]
     Active Substance: HEPARIN SODIUM
     Indication: THROMBOSIS PROPHYLAXIS
     Route: 065

REACTIONS (5)
  - Subarachnoid haemorrhage [Fatal]
  - Haemorrhage [Fatal]
  - Activated partial thromboplastin time prolonged [Fatal]
  - Abdominal wall haematoma [Fatal]
  - Cardiac arrest [Fatal]
